FAERS Safety Report 7407298-6 (Version None)
Quarter: 2011Q2

REPORT INFORMATION
  Report Type: 
  Country: None (occurrence: None)
  Receive Date: 20110411
  Receipt Date: 20110331
  Transmission Date: 20111010
  Serious: Yes (Other)
  Sender: FDA-Public Use
  Company Number: PHHO2010CH14134

PATIENT
  Sex: Female
  Weight: 62 kg

DRUGS (3)
  1. FTY 720 [Suspect]
     Indication: MULTIPLE SCLEROSIS
     Dosage: CODE NOT BROKEN
     Route: 048
     Dates: start: 20040914, end: 20100420
  2. HYALURONATE SODIUM [Concomitant]
  3. FTY [Suspect]
     Indication: MULTIPLE SCLEROSIS
     Dosage: 0.5MG
     Route: 048
     Dates: start: 20100421, end: 20100918

REACTIONS (3)
  - PAPULE [None]
  - SQUAMOUS CELL CARCINOMA [None]
  - SKIN LESION [None]
